FAERS Safety Report 4807271-8 (Version None)
Quarter: 2005Q4

REPORT INFORMATION
  Report Type: 
  Country: None (occurrence: None)
  Receive Date: 20051020
  Receipt Date: 20051020
  Transmission Date: 20060501
  Serious: No
  Sender: FDA-Public Use
  Company Number: None

PATIENT
  Age: 11 Year
  Sex: Female
  Weight: 82.1011 kg

DRUGS (2)
  1. REMERON [Suspect]
     Indication: ANXIETY
     Dosage: 7.5 MG PO QHS   (1 DOSE)
     Route: 048
  2. ADDERALL XR 10 [Concomitant]

REACTIONS (4)
  - CHILLS [None]
  - ERYTHEMA [None]
  - PRURITUS [None]
  - RASH [None]
